FAERS Safety Report 19517047 (Version 3)
Quarter: 2021Q3

REPORT INFORMATION
  Report Type: Report from Study
  Country: None (occurrence: US)
  Receive Date: 20210711
  Receipt Date: 20210831
  Transmission Date: 20211014
  Serious: Yes (Hospitalization, Other)
  Sender: FDA-Public Use
  Company Number: US-ABBVIE-21K-163-3982860-00

PATIENT
  Age: 69 Year
  Sex: Male
  Weight: 122.58 kg

DRUGS (1)
  1. RINVOQ [Suspect]
     Active Substance: UPADACITINIB
     Indication: RHEUMATOID ARTHRITIS
     Route: 048
     Dates: end: 202105

REACTIONS (4)
  - Arthralgia [Unknown]
  - Back pain [Unknown]
  - Spinal nerve stimulator implantation [Unknown]
  - Incision site pain [Unknown]

NARRATIVE: CASE EVENT DATE: 2021
